FAERS Safety Report 20925236 (Version 3)
Quarter: 2023Q1

REPORT INFORMATION
  Report Type: Spontaneous
  Country: US (occurrence: US)
  Receive Date: 20220607
  Receipt Date: 20230313
  Transmission Date: 20230417
  Serious: No
  Sender: FDA-Public Use
  Company Number: US-PHARMAESSENTIA CORPORATION-US-2022-PEC-000566

PATIENT

DRUGS (6)
  1. BESREMI [Suspect]
     Active Substance: ROPEGINTERFERON ALFA-2B-NJFT
     Indication: Polycythaemia vera
     Dosage: 50 MICROGRAM, EVERY 14 DAYS
     Route: 058
     Dates: start: 20220309
  2. BESREMI [Suspect]
     Active Substance: ROPEGINTERFERON ALFA-2B-NJFT
     Dosage: 100 MICROGRAM
     Route: 058
  3. BESREMI [Suspect]
     Active Substance: ROPEGINTERFERON ALFA-2B-NJFT
     Dosage: 250 MICROGRAM, EVERY 14 DAYS
     Route: 058
  4. BESREMI [Suspect]
     Active Substance: ROPEGINTERFERON ALFA-2B-NJFT
     Dosage: UNK
     Route: 058
  5. BESREMI [Suspect]
     Active Substance: ROPEGINTERFERON ALFA-2B-NJFT
     Dosage: UNK
     Route: 065
  6. LOSARTAN [Suspect]
     Active Substance: LOSARTAN
     Indication: Blood pressure decreased
     Dosage: 100 MG
     Route: 065

REACTIONS (13)
  - Blood pressure decreased [Recovered/Resolved]
  - Platelet count increased [Recovering/Resolving]
  - Sciatica [Unknown]
  - Accidental exposure to product [Unknown]
  - Accidental underdose [Unknown]
  - Device connection issue [Unknown]
  - Dyspepsia [Unknown]
  - Constipation [Unknown]
  - Pruritus [Recovered/Resolved]
  - Haematocrit decreased [Recovered/Resolved]
  - Myalgia [Recovered/Resolved]
  - Arthralgia [Recovered/Resolved]
  - Diarrhoea [Unknown]

NARRATIVE: CASE EVENT DATE: 20220427
